FAERS Safety Report 9286131 (Version 1)
Quarter: 2013Q2

REPORT INFORMATION
  Report Type: Spontaneous
  Country: US (occurrence: US)
  Receive Date: 20130513
  Receipt Date: 20130513
  Transmission Date: 20140414
  Serious: No
  Sender: FDA-Public Use
  Company Number: US-ASTRAZENECA-2013SE29831

PATIENT
  Age: 49 Year
  Sex: Female

DRUGS (14)
  1. CRESTOR [Suspect]
     Route: 048
  2. HUMIRA [Suspect]
     Indication: ANKYLOSING SPONDYLITIS
     Dosage: 40 MG, 1 IN 2 WEEKS
     Route: 065
     Dates: start: 201212, end: 201301
  3. HUMIRA [Suspect]
     Indication: ANKYLOSING SPONDYLITIS
     Dosage: 40 MG, 1 IN 2 WEEKS
     Route: 065
     Dates: start: 20130327
  4. SPK [Concomitant]
  5. NAPROSYN [Concomitant]
     Indication: PAIN
  6. VICODIN [Concomitant]
     Indication: PAIN
  7. CHLORZOXAZONE [Concomitant]
     Indication: MUSCLE RELAXANT THERAPY
  8. LUNESTA [Concomitant]
     Indication: SLEEP DISORDER
  9. SYMPHORA [Concomitant]
  10. PROBIOTICS [Concomitant]
  11. CHROMIUM PICOLINATE [Concomitant]
  12. SUPER OMEGA 3 [Concomitant]
  13. OSTEO BI-FLEX [Concomitant]
  14. HOMEOPATHIC REMEDIES [Concomitant]

REACTIONS (7)
  - Adverse drug reaction [Unknown]
  - Pain [Unknown]
  - Injection site bruising [Unknown]
  - Injection site swelling [Unknown]
  - Injection site pruritus [Unknown]
  - Device malfunction [Unknown]
  - Incorrect dose administered [Unknown]
